FAERS Safety Report 7793617-8 (Version None)
Quarter: 2011Q4

REPORT INFORMATION
  Report Type: 
  Country: None (occurrence: None)
  Receive Date: 20111003
  Receipt Date: 20110921
  Transmission Date: 20120403
  Serious: Yes (Hospitalization, Other)
  Sender: FDA-Public Use
  Company Number: CA-ELI_LILLY_AND_COMPANY-CA201109006085

PATIENT
  Sex: Female

DRUGS (15)
  1. SEROQUEL [Concomitant]
  2. TRAZODONE HYDROCHLORIDE [Concomitant]
  3. IMIPRAMINE [Concomitant]
  4. MODAFINIL [Concomitant]
  5. CLONAZEPAM [Concomitant]
  6. ATIVAN [Concomitant]
  7. ZYPREXA ZYDIS [Suspect]
     Dosage: 25 MG, QD
  8. FLURAZEPAM [Concomitant]
  9. ZYPREXA ZYDIS [Suspect]
     Indication: MAJOR DEPRESSION
     Dosage: 15 MG, QD
     Dates: start: 20020101, end: 20080715
  10. ZYPREXA ZYDIS [Suspect]
     Dosage: 20 MG, QD
  11. ZYPREXA [Suspect]
     Dosage: 20 MG, QD
  12. ZYPREXA [Suspect]
  13. ZYPREXA ZYDIS [Suspect]
     Dosage: 5 MG, EACH MORNING
  14. ZYPREXA [Suspect]
     Indication: MAJOR DEPRESSION
     Dosage: 30 MG, QD
     Dates: end: 20080715
  15. LITHIUM [Concomitant]

REACTIONS (17)
  - SEROTONIN SYNDROME [None]
  - UPPER RESPIRATORY TRACT INFECTION [None]
  - WEIGHT INCREASED [None]
  - OFF LABEL USE [None]
  - MYOCARDIAL INFARCTION [None]
  - MITRAL VALVE INCOMPETENCE [None]
  - ASPARTATE AMINOTRANSFERASE INCREASED [None]
  - NEUROLEPTIC MALIGNANT SYNDROME [None]
  - BLOOD CHOLESTEROL INCREASED [None]
  - BLOOD TRIGLYCERIDES INCREASED [None]
  - LEFT VENTRICULAR HYPERTROPHY [None]
  - DIABETES MELLITUS [None]
  - HYPERTENSION [None]
  - OVERDOSE [None]
  - CEREBROVASCULAR ACCIDENT [None]
  - DIABETIC NEUROPATHY [None]
  - TYPE 2 DIABETES MELLITUS [None]
